FAERS Safety Report 4490002-1 (Version None)
Quarter: 2004Q4

REPORT INFORMATION
  Report Type: 
  Country: None (occurrence: None)
  Receive Date: 20041027
  Receipt Date: 20041014
  Transmission Date: 20050328
  Serious: Yes (Death, Other)
  Sender: FDA-Public Use
  Company Number: 2004079364

PATIENT
  Age: 80 Year
  Sex: Male
  Weight: 75 kg

DRUGS (2)
  1. GABAPENTIN [Suspect]
     Indication: NEURALGIA
  2. TAMSULOSIN (TAMSULOSN) [Suspect]
     Indication: ILL-DEFINED DISORDER
     Dosage: 400 MCG (400 MCG, 1 IN 1 D), ORAL
     Route: 048

REACTIONS (1)
  - MYOCARDIAL ISCHAEMIA [None]
